FAERS Safety Report 17468396 (Version 4)
Quarter: 2020Q4

REPORT INFORMATION
  Report Type: Spontaneous
  Country: CZ (occurrence: CZ)
  Receive Date: 20200227
  Receipt Date: 20201030
  Transmission Date: 20210113
  Serious: Yes (Life-Threatening, Other)
  Sender: FDA-Public Use
  Company Number: CZ-MYLANLABS-2020M1021809

PATIENT
  Age: 82 Year
  Sex: Male

DRUGS (21)
  1. CYTARABINE. [Suspect]
     Active Substance: CYTARABINE
     Indication: MANTLE CELL LYMPHOMA
     Dosage: SECOND CYCLE; R-CYTARABINE
  2. BENDAMUSTINE HYDROCHLORIDE. [Suspect]
     Active Substance: BENDAMUSTINE HYDROCHLORIDE
     Dosage: UNK
     Route: 065
  3. IBRUTINIB [Suspect]
     Active Substance: IBRUTINIB
     Indication: MANTLE CELL LYMPHOMA
     Dosage: UNK
     Dates: start: 201809
  4. DEXAMETHASONE. [Suspect]
     Active Substance: DEXAMETHASONE
     Dosage: UNK
     Route: 065
  5. RITUXIMAB. [Suspect]
     Active Substance: RITUXIMAB
     Dosage: R-GD
  6. RITUXIMAB. [Suspect]
     Active Substance: RITUXIMAB
     Dosage: UNK
     Route: 065
  7. GEMCITABINE. [Suspect]
     Active Substance: GEMCITABINE
     Dosage: UNK
     Route: 065
  8. RITUXIMAB. [Suspect]
     Active Substance: RITUXIMAB
     Dosage: SECOND CYCLE; R-CYTARABINE
  9. CHOP [Suspect]
     Active Substance: CYCLOPHOSPHAMIDE\DOXORUBICIN\PREDNISONE\VINCRISTINE
     Indication: MANTLE CELL LYMPHOMA
     Dosage: FIRST CYCLE; R-MINICHOP
  10. PREDNISOLONE. [Suspect]
     Active Substance: PREDNISOLONE
     Indication: MANTLE CELL LYMPHOMA
     Dosage: UNK
     Route: 065
  11. CYCLOPHOSPHAMIDE. [Suspect]
     Active Substance: CYCLOPHOSPHAMIDE
     Indication: MANTLE CELL LYMPHOMA
     Dosage: UNK
     Route: 065
  12. BENDAMUSTINE HYDROCHLORIDE. [Suspect]
     Active Substance: BENDAMUSTINE HYDROCHLORIDE
     Dosage: 2 CYCLES OF R-BAC500
  13. CYTARABINE. [Suspect]
     Active Substance: CYTARABINE
     Dosage: UNK
     Route: 065
  14. VINCRISTINE [Suspect]
     Active Substance: VINCRISTINE
     Indication: MANTLE CELL LYMPHOMA
     Dosage: AS PART OF R-MINICHOP REGIMEN
     Route: 042
  15. DEXAMETHASONE. [Suspect]
     Active Substance: DEXAMETHASONE
     Indication: MANTLE CELL LYMPHOMA STAGE III
     Dosage: COMPLETED 1 CYCLE OF R-GD (RITUXIMAB, GEMCITABINE AND DEXAMETHASONE) REGIMEN
  16. RITUXIMAB. [Suspect]
     Active Substance: RITUXIMAB
     Indication: MANTLE CELL LYMPHOMA STAGE III
     Dosage: FIRST CYCLE; R-MINICHOP
  17. RITUXIMAB. [Suspect]
     Active Substance: RITUXIMAB
     Dosage: 2 CYCLES OF R-BAC500
  18. DOXORUBICIN [Suspect]
     Active Substance: DOXORUBICIN
     Indication: MANTLE CELL LYMPHOMA
     Dosage: AS PART OF R-MINICHOP REGIMEN
     Route: 042
  19. BENDAMUSTINE HYDROCHLORIDE. [Suspect]
     Active Substance: BENDAMUSTINE HYDROCHLORIDE
     Indication: MANTLE CELL LYMPHOMA
     Dosage: 2 CYCLES OF R-BAC500
  20. GEMCITABINE. [Suspect]
     Active Substance: GEMCITABINE
     Indication: MANTLE CELL LYMPHOMA STAGE III
     Dosage: COMPLETED 1 CYCLE OF R-GD (RITUXIMAB, GEMCITABINE AND DEXAMETHASONE) REGIMEN
  21. RITUXIMAB. [Suspect]
     Active Substance: RITUXIMAB
     Indication: MANTLE CELL LYMPHOMA
     Dosage: 2 CYCLES OF R-BAC500

REACTIONS (9)
  - Renal failure [Recovered/Resolved]
  - Diabetic metabolic decompensation [Recovered/Resolved]
  - Drug intolerance [Unknown]
  - Splenomegaly [Unknown]
  - Neutropenia [Recovered/Resolved]
  - Mantle cell lymphoma [Unknown]
  - Lymphocytosis [Unknown]
  - Product use in unapproved indication [Unknown]
  - Disease progression [Unknown]
